FAERS Safety Report 5029802-8 (Version None)
Quarter: 2006Q2

REPORT INFORMATION
  Report Type: 
  Country: None (occurrence: None)
  Receive Date: 20060620
  Receipt Date: 20060527
  Transmission Date: 20061013
  Serious: Yes (Death)
  Sender: FDA-Public Use
  Company Number: JP-AVENTIS-200611634JP

PATIENT
  Age: 65 Year
  Sex: Female
  Weight: 55 kg

DRUGS (5)
  1. TAXOTERE [Suspect]
     Indication: BREAST CANCER METASTATIC
     Route: 041
     Dates: start: 20060516, end: 20060516
  2. HYSRON [Concomitant]
     Indication: BREAST CANCER METASTATIC
     Route: 048
     Dates: start: 20050524, end: 20060522
  3. FURTULON [Concomitant]
     Indication: BREAST CANCER METASTATIC
     Route: 048
     Dates: start: 20051003, end: 20060508
  4. DECADRON [Concomitant]
     Indication: PREMEDICATION
     Dates: start: 20060516, end: 20060516
  5. KYTRIL [Concomitant]
     Indication: PREMEDICATION
     Dates: start: 20060516, end: 20060516

REACTIONS (10)
  - ANOREXIA [None]
  - ARRHYTHMIA [None]
  - CARDIAC FAILURE CONGESTIVE [None]
  - CARDIO-RESPIRATORY ARREST [None]
  - CARDIOMYOPATHY [None]
  - CEREBRAL HAEMORRHAGE [None]
  - CEREBRAL INFARCTION [None]
  - MALAISE [None]
  - PULMONARY CONGESTION [None]
  - SUDDEN DEATH [None]
